FAERS Safety Report 7916835-4 (Version None)
Quarter: 2011Q4

REPORT INFORMATION
  Report Type: 
  Country: None (occurrence: None)
  Receive Date: 20111116
  Receipt Date: 20111114
  Transmission Date: 20120403
  Serious: Yes (Hospitalization)
  Sender: FDA-Public Use
  Company Number: BE-BRISTOL-MYERS SQUIBB COMPANY-15921927

PATIENT
  Age: 74 Year
  Sex: Female
  Weight: 66 kg

DRUGS (18)
  1. FOLIC ACID [Concomitant]
     Dates: start: 20110623
  2. VITAMIN B-12 [Concomitant]
     Dates: start: 20110624
  3. DOXEPIN [Concomitant]
  4. MULTI-VITAMIN [Concomitant]
     Dates: start: 20110210
  5. VITAMIN D [Concomitant]
  6. PEMETREXED DISODIUM [Suspect]
     Indication: NON-SMALL CELL LUNG CANCER
     Dosage: 1 OF  3 WEEK CYCLE. INTER ON 21JUL11 RESTAT AT 375MG/M2 DOSE
     Route: 042
     Dates: start: 20110630
  7. DIGOXIN [Concomitant]
  8. ALLOPURINOL [Concomitant]
  9. ETHACRYNIC ACID [Concomitant]
  10. PROCHLORPERAZINE [Concomitant]
  11. CARVEDILOL [Concomitant]
  12. CLONAZEPAM [Concomitant]
  13. TRAZODONE HCL [Concomitant]
  14. VITAMIN B COMPLEX CAP [Concomitant]
  15. CARBOPLATIN [Suspect]
     Indication: NON-SMALL CELL LUNG CANCER
     Dosage: AUC=6 ON DAY 1 OF 3 WEEK CYCLE. 30JUN-30JUN11 AND 6DF FROM UNK INTER ON 21JUL2011 RESTAT AT AUC5
     Dates: start: 20110630
  16. RAMUCIRUMAB [Suspect]
     Indication: NON-SMALL CELL LUNG CANCER
     Dosage: 1 OF  3 WEEK CYCLE.LAST DOSE ON 30JU11 INTER ON 21JUL2011
     Route: 042
     Dates: start: 20110630
  17. IRON SULFATETHIAMIN COMPOUND TAB [Concomitant]
  18. LOVASTATIN [Concomitant]

REACTIONS (2)
  - INTESTINAL ISCHAEMIA [None]
  - ATRIAL FIBRILLATION [None]
